FAERS Safety Report 4501338-X (Version None)
Quarter: 2004Q3

REPORT INFORMATION
  Report Type: 
  Country: None (occurrence: None)
  Receive Date: 20040928
  Receipt Date: 20040816
  Transmission Date: 20050211
  Serious: No
  Sender: FDA-Public Use
  Company Number: 04P-163-0270745-00

PATIENT
  Age: 72 Year
  Sex: Female
  Weight: 87.9978 kg

DRUGS (5)
  1. HUMIRA [Suspect]
     Indication: RHEUMATOID ARTHRITIS
     Dosage: 40 MG, 1 IN 2 WK, SUBCUTANEOUS
     Route: 058
     Dates: start: 20040526, end: 20040722
  2. METHOTREXATE [Concomitant]
  3. FOLIC ACID [Concomitant]
  4. TOLTERODINE TARTRATE [Concomitant]
  5. NAPROXEN [Concomitant]

REACTIONS (3)
  - HEADACHE [None]
  - HYPERSENSITIVITY [None]
  - INJECTION SITE BURNING [None]
